FAERS Safety Report 9805504 (Version 1)
Quarter: 2014Q1

REPORT INFORMATION
  Report Type: Spontaneous
  Country: US (occurrence: None)
  Receive Date: 20140108
  Receipt Date: 20140108
  Transmission Date: 20141002
  Serious: Yes (Death)
  Sender: FDA-Public Use
  Company Number: None

PATIENT
  Age: 66 Year
  Sex: Male

DRUGS (1)
  1. SILDENAFIL [Suspect]
     Indication: PARENTERAL NUTRITION
     Route: 048
     Dates: start: 20101022, end: 20140102

REACTIONS (2)
  - Fall [None]
  - Haemorrhage [None]
